FAERS Safety Report 11535228 (Version 1)
Quarter: 2015Q3

REPORT INFORMATION
  Report Type: Spontaneous
  Country: US (occurrence: US)
  Receive Date: 20150903
  Receipt Date: 20150903
  Transmission Date: 20151125
  Serious: No
  Sender: FDA-Public Use
  Company Number: US-ELI_LILLY_AND_COMPANY-US201103005673

PATIENT
  Sex: Female

DRUGS (6)
  1. HUMALOG [Suspect]
     Active Substance: INSULIN LISPRO
     Dosage: 35 U, OTHER
  2. HUMALOG [Suspect]
     Active Substance: INSULIN LISPRO
     Dosage: 55 U, EACH EVENING
  3. HUMALOG [Suspect]
     Active Substance: INSULIN LISPRO
     Dosage: 35 U, OTHER
  4. HUMALOG [Suspect]
     Active Substance: INSULIN LISPRO
     Indication: TYPE 2 DIABETES MELLITUS
     Dosage: 35 U, EACH MORNING
  5. HUMALOG [Suspect]
     Active Substance: INSULIN LISPRO
     Dosage: 55 U, EACH EVENING
  6. HUMALOG [Suspect]
     Active Substance: INSULIN LISPRO
     Dosage: 35 U, EACH MORNING

REACTIONS (3)
  - Incorrect product storage [Unknown]
  - Abnormal dreams [Unknown]
  - Visual acuity reduced [Not Recovered/Not Resolved]
